FAERS Safety Report 12769720 (Version 1)
Quarter: 2016Q3

REPORT INFORMATION
  Report Type: Spontaneous
  Country: US (occurrence: US)
  Receive Date: 20160922
  Receipt Date: 20160922
  Transmission Date: 20161109
  Serious: Yes (Other)
  Sender: FDA-Public Use
  Company Number: US-ASTRAZENECA-2016SE97991

PATIENT
  Age: 54 Year
  Sex: Female
  Weight: 49.9 kg

DRUGS (2)
  1. TENORMIN [Suspect]
     Active Substance: ATENOLOL
     Indication: MITRAL VALVE PROLAPSE
     Route: 048
     Dates: start: 1982, end: 1986
  2. TAGRISSO [Suspect]
     Active Substance: OSIMERTINIB
     Indication: LUNG NEOPLASM MALIGNANT
     Route: 048
     Dates: start: 20160715

REACTIONS (10)
  - Cough [Unknown]
  - Muscle spasms [Unknown]
  - Lung neoplasm malignant [Unknown]
  - Rash [Unknown]
  - Metastasis [Unknown]
  - Diarrhoea [Unknown]
  - Influenza like illness [Recovering/Resolving]
  - Osteoporosis [Unknown]
  - Hypotension [Unknown]
  - Body height decreased [Unknown]

NARRATIVE: CASE EVENT DATE: 2005
